FAERS Safety Report 23237223 (Version 1)
Quarter: 2023Q4

REPORT INFORMATION
  Report Type: Spontaneous
  Country: US (occurrence: US)
  Receive Date: 20231128
  Receipt Date: 20231128
  Transmission Date: 20240110
  Serious: No
  Sender: FDA-Public Use
  Company Number: US-PFIZER INC-202300384775

PATIENT
  Age: 81 Year
  Sex: Female

DRUGS (14)
  1. IBRANCE [Suspect]
     Active Substance: PALBOCICLIB
     Dosage: 125 MG, CYCLIC (DAILY X 21 DAYS, EVERY 28 DAYS
  2. ELIQUIS [Concomitant]
     Active Substance: APIXABAN
  3. ALBUTEROL SULFATE [Concomitant]
     Active Substance: ALBUTEROL SULFATE
  4. BETHANECHOL CHLORIDE AV KARE [Concomitant]
  5. DEXAMETHASONE [Concomitant]
     Active Substance: DEXAMETHASONE
  6. MEMANTINE [Concomitant]
     Active Substance: MEMANTINE
  7. NIFEDIPINE [Concomitant]
     Active Substance: NIFEDIPINE
  8. LOPRESSOR [Concomitant]
     Active Substance: METOPROLOL TARTRATE
  9. PANTOPRAZOLE SODIUM [Concomitant]
     Active Substance: PANTOPRAZOLE SODIUM
  10. ROPINIROLE [Concomitant]
     Active Substance: ROPINIROLE
  11. CRESTOR [Concomitant]
     Active Substance: ROSUVASTATIN CALCIUM
  12. HYDROMORPHONE [Concomitant]
     Active Substance: HYDROMORPHONE
  13. TRADJENTA [Concomitant]
     Active Substance: LINAGLIPTIN
  14. LETROZOLE [Concomitant]
     Active Substance: LETROZOLE

REACTIONS (1)
  - Back pain [Not Recovered/Not Resolved]
